FAERS Safety Report 6442435-1 (Version None)
Quarter: 2009Q4

REPORT INFORMATION
  Report Type: 
  Country: None (occurrence: None)
  Receive Date: 20091112
  Receipt Date: 20091102
  Transmission Date: 20100525
  Serious: Yes (Hospitalization)
  Sender: FDA-Public Use
  Company Number: 2009AL006996

PATIENT
  Sex: Female

DRUGS (4)
  1. DIAZEPAM TAB [Suspect]
     Dosage: 300 MG
  2. QUETIAPINE [Concomitant]
  3. FERROUS FUMARATE [Concomitant]
  4. PARACETAMOL/DIHYDROCODEINE [Concomitant]

REACTIONS (3)
  - COMA [None]
  - ELECTROCARDIOGRAM QT PROLONGED [None]
  - MULTIPLE DRUG OVERDOSE [None]
